FAERS Safety Report 9843754 (Version 1)
Quarter: 2014Q1

REPORT INFORMATION
  Report Type: Spontaneous
  Country: US (occurrence: US)
  Receive Date: 20140126
  Receipt Date: 20140126
  Transmission Date: 20141002
  Serious: No
  Sender: FDA-Public Use
  Company Number: US-009507513-1401USA011317

PATIENT
  Sex: Female

DRUGS (1)
  1. MIRALAX [Suspect]
     Indication: DIVERTICULITIS
     Dosage: UNK, PRN
     Route: 048

REACTIONS (3)
  - Drug effect increased [Unknown]
  - Expired drug administered [Unknown]
  - Off label use [Unknown]
